FAERS Safety Report 4721876-4 (Version None)
Quarter: 2005Q3

REPORT INFORMATION
  Report Type: 
  Country: None (occurrence: None)
  Receive Date: 20050721
  Receipt Date: 20050523
  Transmission Date: 20060218
  Serious: No
  Sender: FDA-Public Use
  Company Number: US-BRISTOL-MYERS SQUIBB COMPANY-12979365

PATIENT
  Age: 77 Year
  Sex: Female
  Weight: 64 kg

DRUGS (2)
  1. COUMADIN [Suspect]
     Indication: ATRIAL FIBRILLATION
     Dosage: 2.5 MG 5 DAYS PER WEEK AND 5 MG TWO DAYS A WEEK
     Dates: start: 20050516
  2. PROPAFENONE [Concomitant]
     Dates: start: 20050516

REACTIONS (1)
  - DYSGEUSIA [None]
